FAERS Safety Report 13771420 (Version 2)
Quarter: 2017Q3

REPORT INFORMATION
  Report Type: Spontaneous
  Country: US (occurrence: US)
  Receive Date: 20170720
  Receipt Date: 20170728
  Transmission Date: 20171127
  Serious: No
  Sender: FDA-Public Use
  Company Number: US-TEVA-788779ACC

PATIENT
  Sex: Female

DRUGS (1)
  1. PARAGARD T 380A [Suspect]
     Active Substance: COPPER
     Indication: CONTRACEPTION
     Route: 065
     Dates: start: 201610

REACTIONS (5)
  - Dysuria [Unknown]
  - Blood urine [Recovered/Resolved]
  - Vaginal infection [Unknown]
  - Vulvovaginal inflammation [Unknown]
  - Vulvovaginal discomfort [Unknown]
